FAERS Safety Report 12098740 (Version 1)
Quarter: 2016Q1

REPORT INFORMATION
  Report Type: Spontaneous
  Country: US (occurrence: US)
  Receive Date: 20160222
  Receipt Date: 20160222
  Transmission Date: 20160526
  Serious: No
  Sender: FDA-Public Use
  Company Number: PHEH2016US003787

PATIENT
  Sex: Female

DRUGS (1)
  1. COSENTYX [Suspect]
     Active Substance: SECUKINUMAB
     Indication: PSORIASIS
     Dosage: WKLY
     Route: 065

REACTIONS (4)
  - Pruritus [Unknown]
  - Erythema [Unknown]
  - Burning sensation [Unknown]
  - Psoriasis [Unknown]
